FAERS Safety Report 19380123 (Version 1)
Quarter: 2021Q2

REPORT INFORMATION
  Report Type: Spontaneous
  Country: US (occurrence: US)
  Receive Date: 20210607
  Receipt Date: 20210607
  Transmission Date: 20210717
  Serious: No
  Sender: FDA-Public Use
  Company Number: US-TEVA-2021-US-1913855

PATIENT
  Sex: Male

DRUGS (4)
  1. SUBOXONE [Concomitant]
     Active Substance: BUPRENORPHINE HYDROCHLORIDE\NALOXONE HYDROCHLORIDE
  2. BUPRENORPHINE. [Suspect]
     Active Substance: BUPRENORPHINE
     Dosage: IN 2018 OR 2019 (2 TO 3 YEARS AGO).
     Route: 062
  3. HYDROCODONE [Suspect]
     Active Substance: HYDROCODONE
     Indication: BREAKTHROUGH PAIN
     Dosage: AS NEEDED
     Route: 065
  4. TRAMADOL. [Concomitant]
     Active Substance: TRAMADOL

REACTIONS (2)
  - Drug ineffective [Unknown]
  - Off label use [Unknown]
